FAERS Safety Report 18342963 (Version 1)
Quarter: 2020Q4

REPORT INFORMATION
  Report Type: Spontaneous
  Country: US (occurrence: US)
  Receive Date: 20201002
  Receipt Date: 20201002
  Transmission Date: 20210113
  Serious: Yes (Other)
  Sender: FDA-Public Use
  Company Number: None

PATIENT
  Age: 74 Year
  Sex: Female
  Weight: 63.45 kg

DRUGS (7)
  1. ESOMEPRAZOLE. [Concomitant]
     Active Substance: ESOMEPRAZOLE MAGNESIUM
  2. STRESS B COMPLEX [Concomitant]
  3. VENLAFAXINE ER [Suspect]
     Active Substance: VENLAFAXINE HYDROCHLORIDE
     Indication: GASTROOESOPHAGEAL REFLUX DISEASE
     Dosage: ?          QUANTITY:1 CAPSULE(S);?
     Route: 048
     Dates: start: 20200724, end: 20200814
  4. ATORVASTATIN [Concomitant]
     Active Substance: ATORVASTATIN
  5. ALMODIPINE BESYLATE [Concomitant]
  6. CHOLESTYRAMINE. [Concomitant]
     Active Substance: CHOLESTYRAMINE
  7. BISOPROLOL [Concomitant]
     Active Substance: BISOPROLOL

REACTIONS (8)
  - Confusional state [None]
  - Bone pain [None]
  - Nausea [None]
  - Headache [None]
  - Hallucination [None]
  - Dyspnoea [None]
  - Blood pressure increased [None]
  - Sleep disorder [None]

NARRATIVE: CASE EVENT DATE: 20200724
